FAERS Safety Report 10727936 (Version 2)
Quarter: 2015Q1

REPORT INFORMATION
  Report Type: Spontaneous
  Country: US (occurrence: US)
  Receive Date: 20150121
  Receipt Date: 20150204
  Transmission Date: 20150721
  Serious: Yes (Other)
  Sender: FDA-Public Use
  Company Number: ALCN2015US000720

PATIENT
  Age: 35 Year
  Sex: Male

DRUGS (3)
  1. TOBRADEX [Concomitant]
     Active Substance: DEXAMETHASONE\TOBRAMYCIN
     Indication: POSTOPERATIVE CARE
     Dosage: 1 GTT, Q2H
     Route: 047
  2. NEPAFENAC [Suspect]
     Active Substance: NEPAFENAC
     Dosage: 1 GTT, Q4H
     Route: 047
  3. NEPAFENAC [Suspect]
     Active Substance: NEPAFENAC
     Indication: POSTOPERATIVE CARE
     Dosage: 1 GTT, Q2H
     Route: 047

REACTIONS (6)
  - Photophobia [Unknown]
  - Vision blurred [Recovered/Resolved with Sequelae]
  - Ulcerative keratitis [Recovered/Resolved with Sequelae]
  - Corneal infiltrates [Recovered/Resolved with Sequelae]
  - Ocular hyperaemia [Unknown]
  - Visual acuity reduced [Recovered/Resolved with Sequelae]
